FAERS Safety Report 10872600 (Version 1)
Quarter: 2015Q1

REPORT INFORMATION
  Report Type: Spontaneous
  Country: US (occurrence: US)
  Receive Date: 20150227
  Receipt Date: 20150227
  Transmission Date: 20150721
  Serious: No
  Sender: FDA-Public Use
  Company Number: US-BRISTOL-MYERS SQUIBB COMPANY-BMS-2015-011789

PATIENT
  Sex: Female
  Weight: 47.62 kg

DRUGS (1)
  1. ABILIFY [Suspect]
     Active Substance: ARIPIPRAZOLE
     Indication: BIPOLAR DISORDER
     Dosage: 10 MG, QD
     Route: 048
     Dates: start: 20150216

REACTIONS (6)
  - Musculoskeletal stiffness [Unknown]
  - Vision blurred [Unknown]
  - Feeling jittery [Unknown]
  - Dyspraxia [Unknown]
  - Nervousness [Unknown]
  - Dysgraphia [Unknown]
